FAERS Safety Report 11882531 (Version 1)
Quarter: 2015Q4

REPORT INFORMATION
  Report Type: Spontaneous
  Country: None (occurrence: US)
  Receive Date: 20151231
  Receipt Date: 20151231
  Transmission Date: 20160305
  Serious: No
  Sender: FDA-Public Use
  Company Number: US-MEDAC PHARMA, INC.-1046033

PATIENT
  Age: 76 Year
  Sex: Female
  Weight: 69.09 kg

DRUGS (12)
  1. FOSAMAX [Concomitant]
     Active Substance: ALENDRONATE SODIUM
  2. MULTIVITAMIN [Concomitant]
     Active Substance: VITAMINS
  3. COMPLEX [Concomitant]
  4. FOLIC ACID. [Concomitant]
     Active Substance: FOLIC ACID
  5. ESTER-C [Concomitant]
     Active Substance: CALCIUM\VITAMINS
  6. RASUVO [Suspect]
     Active Substance: METHOTREXATE SODIUM
     Indication: RHEUMATOID ARTHRITIS
     Dates: start: 201511
  7. PREDNISONE. [Concomitant]
     Active Substance: PREDNISONE
  8. ARMOUR THYROID [Concomitant]
     Active Substance: THYROID, PORCINE\THYROID, UNSPECIFIED
  9. VITAMIN D [Concomitant]
     Active Substance: CHOLECALCIFEROL
  10. BIOTIN [Concomitant]
     Active Substance: BIOTIN
  11. VITAMIN B COMPLEX [Concomitant]
     Active Substance: CYANOCOBALAMIN\DEXPANTHENOL\NIACINAMIDE\PYRIDOXINE HYDROCHLORIDE\RIBOFLAVIN 5^-PHOSPHATE SODIUM\THIAMINE HYDROCHLORIDE\VITAMIN B COMPLEX
  12. CEPHALEXIN. [Concomitant]
     Active Substance: CEPHALEXIN

REACTIONS (3)
  - No adverse event [None]
  - Device issue [Recovered/Resolved]
  - Accidental exposure to product [Recovered/Resolved]
